FAERS Safety Report 6101492-2 (Version None)
Quarter: 2009Q1

REPORT INFORMATION
  Report Type: 
  Country: None (occurrence: None)
  Receive Date: 20090303
  Receipt Date: 20090303
  Transmission Date: 20090719
  Serious: Yes (Hospitalization)
  Sender: FDA-Public Use
  Company Number: None

PATIENT
  Age: 60 Year
  Sex: Male
  Weight: 131.4 kg

DRUGS (4)
  1. GOODY'S POWDERS [Suspect]
     Indication: ABDOMINAL PAIN UPPER
     Dosage: 15-18 PACKETS PRN PO, PAST SEVERAL WEEKS
     Route: 048
  2. NAPROSYN [Suspect]
     Indication: OSTEOARTHRITIS
     Dosage: 450 MG DAILY PO, CHRONIC
     Route: 048
  3. RANITIDINE [Concomitant]
  4. NAPROSYN [Concomitant]

REACTIONS (3)
  - ANAEMIA [None]
  - GASTRIC ULCER HAEMORRHAGE [None]
  - GASTRITIS [None]
